FAERS Safety Report 15737380 (Version 5)
Quarter: 2019Q1

REPORT INFORMATION
  Report Type: Spontaneous
  Country: BR (occurrence: BR)
  Receive Date: 20181218
  Receipt Date: 20190125
  Transmission Date: 20190417
  Serious: Yes (Other)
  Sender: FDA-Public Use
  Company Number: BR-009507513-1812BRA008395

PATIENT
  Age: 17 Year
  Sex: Male

DRUGS (3)
  1. DAPTOMYCIN. [Suspect]
     Active Substance: DAPTOMYCIN
     Indication: BACTERIAL SEPSIS
     Dosage: 1 TABLET OF 500 MILLIGRAM, ONCE A DAY
     Route: 048
     Dates: start: 2018
  2. MK-0000 [Suspect]
     Active Substance: INVESTIGATIONAL PRODUCT
     Dosage: UNK
  3. ZINFORO [Suspect]
     Active Substance: CEFTAROLINE FOSAMIL
     Indication: BACTERIAL SEPSIS
     Dosage: 1 TABLET OF 600 MILLIGRAM, EVERY 12 HOURS
     Route: 048
     Dates: start: 2018

REACTIONS (2)
  - Leukopenia [Recovering/Resolving]
  - Neutropenia [Unknown]
